FAERS Safety Report 20090750 (Version 1)
Quarter: 2021Q4

REPORT INFORMATION
  Report Type: Spontaneous
  Country: HR (occurrence: HR)
  Receive Date: 20211119
  Receipt Date: 20211119
  Transmission Date: 20220303
  Serious: Yes (Hospitalization, Other)
  Sender: FDA-Public Use
  Company Number: HR-EYEVANCE PHARMACEUTICALS-2021EYE00328

PATIENT
  Age: 8 Month
  Sex: Female
  Weight: 6.19 kg

DRUGS (2)
  1. TOBRADEX ST [Suspect]
     Active Substance: DEXAMETHASONE\TOBRAMYCIN
     Indication: Glaucoma
     Dosage: 1 MILLIGRAM PER GRAM OF DEXAMETHASONE TO THE EYE
     Route: 061
  2. MAXITROL [Suspect]
     Active Substance: DEXAMETHASONE\NEOMYCIN SULFATE\POLYMYXIN B SULFATE
     Indication: Glaucoma
     Dosage: 0.1 % OF DEXAMETHASONE TO THE EYE
     Route: 061

REACTIONS (3)
  - Growth retardation [Recovered/Resolved]
  - Adrenal insufficiency [Recovered/Resolved]
  - Adrenocortical insufficiency acute [Recovered/Resolved]
